FAERS Safety Report 18664512 (Version 2)
Quarter: 2021Q3

REPORT INFORMATION
  Report Type: Report from Study
  Country: US (occurrence: US)
  Receive Date: 20201225
  Receipt Date: 20210908
  Transmission Date: 20211014
  Serious: Yes (Hospitalization)
  Sender: FDA-Public Use
  Company Number: US-SA-2020SA369594

PATIENT
  Age: 64 Year
  Sex: Male

DRUGS (2)
  1. DUPILUMAB [Suspect]
     Active Substance: DUPILUMAB
     Dosage: 200 MG, QOW
     Route: 058
     Dates: start: 202011
  2. DUPILUMAB [Suspect]
     Active Substance: DUPILUMAB
     Indication: ASTHMA
     Dosage: 400 MG, 1X
     Route: 058
     Dates: start: 202010, end: 202010

REACTIONS (7)
  - Hospitalisation [Unknown]
  - Cough [Not Recovered/Not Resolved]
  - Secretion discharge [Not Recovered/Not Resolved]
  - Product dose omission issue [Unknown]
  - Drug ineffective [Unknown]
  - Vision blurred [Not Recovered/Not Resolved]
  - Asthma [Not Recovered/Not Resolved]

NARRATIVE: CASE EVENT DATE: 20201216
